FAERS Safety Report 8301389-3 (Version None)
Quarter: 2012Q2

REPORT INFORMATION
  Report Type: 
  Country: None (occurrence: None)
  Receive Date: 20120420
  Receipt Date: 20120410
  Transmission Date: 20120825
  Serious: Yes (Other)
  Sender: FDA-Public Use
  Company Number: US-ROCHE-1058865

PATIENT

DRUGS (4)
  1. GS 9256 (NS3 PROTEASE INHIBITOR) [Suspect]
     Indication: HEPATITIS C
     Route: 065
  2. COPEGUS [Suspect]
     Indication: HEPATITIS C
     Route: 065
  3. PEGINTERFERON ALFA-2A [Suspect]
     Indication: HEPATITIS C
     Route: 065
  4. TEGOBUVIR [Suspect]
     Indication: HEPATITIS C
     Route: 065

REACTIONS (4)
  - BLOOD BILIRUBIN INCREASED [None]
  - LYMPHOPENIA [None]
  - NEUTROPENIA [None]
  - PANCYTOPENIA [None]
